FAERS Safety Report 8145437-2 (Version None)
Quarter: 2012Q1

REPORT INFORMATION
  Report Type: 
  Country: None (occurrence: None)
  Receive Date: 20120217
  Receipt Date: 20120209
  Transmission Date: 20120608
  Serious: Yes (Other)
  Sender: FDA-Public Use
  Company Number: US-ABBOTT-12P-163-0903919-00

PATIENT
  Sex: Female
  Weight: 74.456 kg

DRUGS (6)
  1. HUMIRA [Suspect]
     Indication: CROHN'S DISEASE
     Dates: start: 20090101, end: 20101101
  2. FOLIC ACID [Concomitant]
     Indication: PRODUCT USED FOR UNKNOWN INDICATION
  3. LISINOPRIL [Concomitant]
     Indication: PRODUCT USED FOR UNKNOWN INDICATION
  4. TRAZODONE HYDROCHLORIDE [Concomitant]
     Indication: PRODUCT USED FOR UNKNOWN INDICATION
  5. PREDNISONE [Concomitant]
     Indication: CROHN'S DISEASE
  6. METHOTREXATE [Concomitant]
     Indication: CROHN'S DISEASE

REACTIONS (5)
  - MUSCLE SPASMS [None]
  - RECTAL HAEMORRHAGE [None]
  - PAIN [None]
  - POSTOPERATIVE WOUND INFECTION [None]
  - WEIGHT DECREASED [None]
